FAERS Safety Report 13197127 (Version 2)
Quarter: 2017Q1

REPORT INFORMATION
  Report Type: Report from Study
  Country: IR (occurrence: IR)
  Receive Date: 20170208
  Receipt Date: 20170228
  Transmission Date: 20170428
  Serious: Yes (Other)
  Sender: FDA-Public Use
  Company Number: IR-BAYER-2017-018757

PATIENT
  Age: 29 Year
  Sex: Female

DRUGS (2)
  1. BETAFERON [Suspect]
     Active Substance: INTERFERON BETA-1B
     Indication: MULTIPLE SCLEROSIS
     Dosage: 125 ?G, QOD
     Route: 058
     Dates: start: 201612
  2. BETAFERON [Suspect]
     Active Substance: INTERFERON BETA-1B
     Indication: MULTIPLE SCLEROSIS
     Dosage: 250 ?G, QOD
     Route: 058
     Dates: start: 20161029

REACTIONS (5)
  - Injection site cellulitis [Recovering/Resolving]
  - Skin warm [Recovering/Resolving]
  - Pain in extremity [Recovering/Resolving]
  - Hepatic enzyme increased [Recovered/Resolved]
  - Injection site reaction [None]

NARRATIVE: CASE EVENT DATE: 20161228
